FAERS Safety Report 4582512-3 (Version None)
Quarter: 2005Q1

REPORT INFORMATION
  Report Type: 
  Country: None (occurrence: None)
  Receive Date: 20050127
  Receipt Date: 20040923
  Transmission Date: 20050727
  Serious: No
  Sender: FDA-Public Use
  Company Number: USA040979148

PATIENT
  Age: 7 Year
  Sex: Male
  Weight: 21 kg

DRUGS (2)
  1. STRATTERA [Suspect]
     Indication: PSYCHOMOTOR HYPERACTIVITY
     Dosage: 40 MG DAY
     Dates: start: 20040701
  2. LUVOX [Concomitant]

REACTIONS (5)
  - ADJUSTMENT DISORDER [None]
  - DRUG EFFECT DECREASED [None]
  - INITIAL INSOMNIA [None]
  - PRESCRIBED OVERDOSE [None]
  - SOMNOLENCE [None]
